FAERS Safety Report 16967638 (Version 1)
Quarter: 2019Q4

REPORT INFORMATION
  Report Type: Spontaneous
  Country: CH (occurrence: CH)
  Receive Date: 20191028
  Receipt Date: 20191028
  Transmission Date: 20200122
  Serious: Yes (Other)
  Sender: FDA-Public Use
  Company Number: CH-JNJFOC-20191027736

PATIENT
  Age: 69 Year
  Sex: Male
  Weight: 101 kg

DRUGS (1)
  1. IMBRUVICA [Suspect]
     Active Substance: IBRUTINIB
     Indication: CHRONIC LYMPHOCYTIC LEUKAEMIA
     Route: 048

REACTIONS (4)
  - Thrombocytopenia [Unknown]
  - Haematuria [Unknown]
  - Lymphocytosis [Unknown]
  - Neutropenia [Unknown]
